FAERS Safety Report 13894231 (Version 1)
Quarter: 2017Q3

REPORT INFORMATION
  Report Type: Spontaneous
  Country: None (occurrence: US)
  Receive Date: 20170822
  Receipt Date: 20170822
  Transmission Date: 20171127
  Serious: No
  Sender: FDA-Public Use
  Company Number: US-KALEO, INC-AUVI20170006

PATIENT
  Sex: Male
  Weight: 74.91 kg

DRUGS (1)
  1. AUVI-Q [Suspect]
     Active Substance: EPINEPHRINE
     Indication: ANAPHYLACTIC REACTION
     Dosage: UNKNOWN, ONCE, IM OR SC
     Dates: start: 2014, end: 2014

REACTIONS (1)
  - Tremor [None]

NARRATIVE: CASE EVENT DATE: 2014
